FAERS Safety Report 9150470 (Version 1)
Quarter: 2013Q1

REPORT INFORMATION
  Report Type: Spontaneous
  Country: US (occurrence: US)
  Receive Date: 20130308
  Receipt Date: 20130308
  Transmission Date: 20140127
  Serious: Yes (Other)
  Sender: FDA-Public Use
  Company Number: US-B.I. PHARMACEUTICALS,INC./RIDGEFIELD-2013-BI-05519BP

PATIENT
  Sex: Female
  Weight: 73 kg

DRUGS (8)
  1. PRADAXA [Suspect]
     Indication: ATRIAL FIBRILLATION
     Dosage: 300 MG
     Route: 048
     Dates: start: 201111
  2. MICARDIS [Suspect]
     Indication: HYPERTENSION
     Dosage: 40 MG
     Route: 048
  3. SYNTHROID [Concomitant]
     Dosage: 0.137 MG
     Route: 048
  4. CITALOPRAM [Concomitant]
     Indication: ANXIETY
     Dosage: 20 MG
     Route: 048
  5. METOPROLOL [Concomitant]
     Dosage: 25 MG
     Route: 048
  6. HYDROCHLOROTHIAZIDE [Concomitant]
     Dosage: 20 MG
     Route: 048
  7. HYDROXYCHLOROQUINE [Concomitant]
     Dosage: 400 MG
     Route: 048
  8. MELOXICAM [Concomitant]
     Dosage: 50 MG
     Route: 048

REACTIONS (3)
  - Basal cell carcinoma [Recovered/Resolved]
  - Contusion [Not Recovered/Not Resolved]
  - Increased tendency to bruise [Not Recovered/Not Resolved]
